FAERS Safety Report 7172450-4 (Version None)
Quarter: 2010Q4

REPORT INFORMATION
  Report Type: 
  Country: None (occurrence: None)
  Receive Date: 20101217
  Receipt Date: 20100209
  Transmission Date: 20110411
  Serious: No
  Sender: FDA-Public Use
  Company Number: US-AMGEN-KDL391824

PATIENT

DRUGS (1)
  1. ENBREL [Suspect]
     Indication: RHEUMATOID ARTHRITIS
     Dosage: 50 MG, QWK
     Route: 058
     Dates: start: 20090101

REACTIONS (7)
  - BRONCHITIS [None]
  - DRY SKIN [None]
  - INFLUENZA [None]
  - NERVOUSNESS [None]
  - RASH [None]
  - SKIN LACERATION [None]
  - STRESS [None]
